FAERS Safety Report 21737926 (Version 1)
Quarter: 2022Q4

REPORT INFORMATION
  Report Type: Spontaneous
  Country: GB (occurrence: GB)
  Receive Date: 20221216
  Receipt Date: 20221216
  Transmission Date: 20230113
  Serious: Yes (Other)
  Sender: FDA-Public Use
  Company Number: GB-MHRA-INPDE53C2DC-B80B-4D1B-B8F5-7B772090AECC

PATIENT
  Age: 81 Year
  Sex: Male

DRUGS (12)
  1. RAMIPRIL [Suspect]
     Active Substance: RAMIPRIL
     Indication: Product used for unknown indication
     Dosage: 2.5 MILLIGRAM
     Route: 048
  2. ASPIRIN [Concomitant]
     Active Substance: ASPIRIN
     Indication: Product used for unknown indication
     Dosage: 75 MILLIGRAM, ONCE A DAY
     Route: 065
     Dates: start: 20221006
  3. ATORVASTATIN [Concomitant]
     Active Substance: ATORVASTATIN
     Indication: Product used for unknown indication
     Dosage: 80 MILLIGRAM, ONCE A DAY AT NIGHT
     Route: 065
     Dates: start: 20221006
  4. BISOPROLOL [Concomitant]
     Active Substance: BISOPROLOL
     Indication: Product used for unknown indication
     Dosage: 2.5 MILLIGRAM, TWO TIMES A DAY
     Route: 065
     Dates: start: 20221006
  5. CANDESARTAN [Concomitant]
     Active Substance: CANDESARTAN
     Indication: Product used for unknown indication
     Dosage: 2 MILLIGRAM, TWO TIMES A DAY
     Route: 065
     Dates: start: 20221121
  6. DAPAGLIFLOZIN [Concomitant]
     Active Substance: DAPAGLIFLOZIN
     Indication: Product used for unknown indication
     Dosage: 10 MILLIGRAM, ONCE A DAY
     Route: 065
     Dates: start: 20221006
  7. BENZYDAMINE [Concomitant]
     Active Substance: BENZYDAMINE
     Indication: Product used for unknown indication
     Dosage: 4-8 PUFFS EVERY 1.5-3 HOURS
     Route: 065
     Dates: start: 20220930
  8. EPLERENONE [Concomitant]
     Active Substance: EPLERENONE
     Indication: Product used for unknown indication
     Dosage: 12.5 MILLIGRAM, ONCE A DAY
     Route: 065
     Dates: start: 20221006
  9. FAMOTIDINE [Concomitant]
     Active Substance: FAMOTIDINE
     Indication: Product used for unknown indication
     Dosage: 20 MILLIGRAM, ONCE A DAY
     Route: 065
     Dates: start: 20221006
  10. NITROGLYCERIN [Concomitant]
     Active Substance: NITROGLYCERIN
     Indication: Product used for unknown indication
     Dosage: 1 - 2 SPRAYS UNDER THE TONGUE
     Route: 065
     Dates: start: 20221006
  11. IVABRADINE [Concomitant]
     Active Substance: IVABRADINE
     Indication: Product used for unknown indication
     Dosage: 2.5 MILLIGRAM, TWO TIMES A DAY (HALF A TABLET TWICE A DAY)
     Route: 065
     Dates: start: 20221006
  12. TICAGRELOR [Concomitant]
     Active Substance: TICAGRELOR
     Indication: Product used for unknown indication
     Dosage: 90 MILLIGRAM, TWO TIMES A DAY FOR 1 YEAR
     Route: 065
     Dates: start: 20221006

REACTIONS (1)
  - Hyponatraemia [Recovered/Resolved]

NARRATIVE: CASE EVENT DATE: 20221006
